FAERS Safety Report 5990869-1 (Version None)
Quarter: 2008Q4

REPORT INFORMATION
  Report Type: 
  Country: None (occurrence: None)
  Receive Date: 20081211
  Receipt Date: 20081203
  Transmission Date: 20090506
  Serious: Yes (Hospitalization)
  Sender: FDA-Public Use
  Company Number: US-GENENTECH-272966

PATIENT

DRUGS (2)
  1. BEVACIZUMAB [Suspect]
     Indication: RENAL CANCER
     Dosage: 5 MG/M2, Q2W
     Route: 042
     Dates: start: 20070717
  2. BAY 43-9006 [Suspect]
     Indication: RENAL CANCER
     Dosage: 200 MG, QD
     Route: 048
     Dates: start: 20070717

REACTIONS (3)
  - ATRIAL FIBRILLATION [None]
  - CEREBRAL ISCHAEMIA [None]
  - WOUND DEHISCENCE [None]
